FAERS Safety Report 10222441 (Version 1)
Quarter: 2014Q2

REPORT INFORMATION
  Report Type: Spontaneous
  Country: US (occurrence: US)
  Receive Date: 20140606
  Receipt Date: 20140606
  Transmission Date: 20141212
  Serious: Yes (Hospitalization, Other)
  Sender: FDA-Public Use
  Company Number: US-PFIZER INC-2014156459

PATIENT
  Age: 47 Year
  Sex: Female
  Weight: 69.84 kg

DRUGS (2)
  1. LYRICA [Suspect]
     Indication: DIABETIC NEUROPATHY
     Dosage: 200 MG, 3X/DAY
  2. JENTADUETO [Concomitant]
     Indication: DIABETES MELLITUS
     Dosage: LINAGLIPTIN 2.5MG/METFORMIN 1000 MG, 2X/DAY

REACTIONS (1)
  - Wound infection [Not Recovered/Not Resolved]
